FAERS Safety Report 6509235-5 (Version None)
Quarter: 2009Q4

REPORT INFORMATION
  Report Type: 
  Country: None (occurrence: None)
  Receive Date: 20091222
  Receipt Date: 20091214
  Transmission Date: 20100525
  Serious: Yes (Hospitalization, Other)
  Sender: FDA-Public Use
  Company Number: US-ASTRAZENECA-2007UW13976

PATIENT
  Age: 41 Year
  Sex: Male
  Weight: 88 kg

DRUGS (14)
  1. SEROQUEL [Suspect]
     Indication: DEPRESSION
     Route: 048
     Dates: start: 19980901
  2. SEROQUEL [Suspect]
     Indication: SCHIZOPHRENIA
     Route: 048
     Dates: start: 19980901
  3. SEROQUEL [Suspect]
     Dosage: 15-300 MG
     Route: 048
     Dates: start: 20010820
  4. SEROQUEL [Suspect]
     Dosage: 15-300 MG
     Route: 048
     Dates: start: 20010820
  5. NAVANE [Concomitant]
     Route: 048
  6. KLONOPIN [Concomitant]
     Route: 048
     Dates: start: 20040130, end: 20070401
  7. KLONOPIN [Concomitant]
     Dosage: 1-3 MG
     Route: 048
     Dates: start: 20040426
  8. ASPIRIN [Concomitant]
     Route: 048
     Dates: start: 20001201
  9. PAXIL/PAXIL XR [Concomitant]
     Indication: SCHIZOAFFECTIVE DISORDER
     Dosage: 25-50 MG
     Route: 048
  10. PERCOCET [Concomitant]
     Indication: PAIN
     Dosage: 5/325 MG 1-2 EVERY 4-6 HRS PRN,5/325 1 TABLET BID, 7.5/500 Q 6 HRS
     Route: 048
     Dates: start: 20040419
  11. METOPROLOL TARTRATE [Concomitant]
     Route: 048
     Dates: start: 20040428
  12. PROTONIX [Concomitant]
     Route: 048
     Dates: start: 20040428
  13. ZESTRIL [Concomitant]
     Indication: HYPERTENSION
     Dates: start: 20000701
  14. ZESTORETIC [Concomitant]
     Dosage: 20/25 MG ONE DAILY
     Route: 048
     Dates: start: 20040525

REACTIONS (5)
  - DIABETES MELLITUS [None]
  - PLEURITIC PAIN [None]
  - PULMONARY MASS [None]
  - STAPHYLOCOCCAL INFECTION [None]
  - TYPE 2 DIABETES MELLITUS [None]
